FAERS Safety Report 19410896 (Version 1)
Quarter: 2021Q2

REPORT INFORMATION
  Report Type: Spontaneous
  Country: US (occurrence: US)
  Receive Date: 20210614
  Receipt Date: 20210614
  Transmission Date: 20210717
  Serious: Yes (Life-Threatening, Hospitalization)
  Sender: FDA-Public Use
  Company Number: None

PATIENT
  Age: 72 Year
  Sex: Male
  Weight: 69.2 kg

DRUGS (12)
  1. CARVEDILOL. [Concomitant]
     Active Substance: CARVEDILOL
     Dates: start: 20201119
  2. PRIMIDONE. [Concomitant]
     Active Substance: PRIMIDONE
     Dates: start: 20170920
  3. SYSTANE LUBRICATING EYE DROPS [Concomitant]
     Dates: start: 20201019
  4. ACETAMINOPHEN. [Concomitant]
     Active Substance: ACETAMINOPHEN
     Dates: start: 20200915
  5. ACYCLOVIR. [Concomitant]
     Active Substance: ACYCLOVIR
     Dates: start: 20170615
  6. LOSARTAN. [Concomitant]
     Active Substance: LOSARTAN
     Dates: start: 20201119
  7. TRAMADOL. [Concomitant]
     Active Substance: TRAMADOL
     Dates: start: 20200915
  8. FENTANYL. [Concomitant]
     Active Substance: FENTANYL
     Dates: start: 20210423
  9. BORTEZOMIB. [Concomitant]
     Active Substance: BORTEZOMIB
     Dates: start: 20210525, end: 20210608
  10. METFORMIN [Suspect]
     Active Substance: METFORMIN HYDROCHLORIDE
     Indication: PLASMA CELL MYELOMA
     Route: 048
     Dates: start: 20210525, end: 20210607
  11. BORTEZOMIB. [Suspect]
     Active Substance: BORTEZOMIB
  12. NELFINAVIR [Suspect]
     Active Substance: NELFINAVIR
     Indication: PLASMA CELL MYELOMA
     Route: 048
     Dates: start: 20210525, end: 20210607

REACTIONS (2)
  - Encephalopathy [None]
  - Disease progression [None]

NARRATIVE: CASE EVENT DATE: 20210612
